FAERS Safety Report 6032061-0 (Version None)
Quarter: 2009Q1

REPORT INFORMATION
  Report Type: 
  Country: None (occurrence: None)
  Receive Date: 20090107
  Receipt Date: 20081223
  Transmission Date: 20090719
  Serious: Yes (Hospitalization, Other)
  Sender: FDA-Public Use
  Company Number: JPI-P-002165

PATIENT
  Age: 15 Year
  Sex: Male

DRUGS (13)
  1. XYREM [Suspect]
     Indication: NARCOLEPSY
     Dosage: SEE IMAGE.
     Route: 048
     Dates: start: 20070802, end: 20070807
  2. XYREM [Suspect]
     Indication: NARCOLEPSY
     Dosage: SEE IMAGE.
     Route: 048
     Dates: start: 20070808, end: 20070814
  3. XYREM [Suspect]
     Indication: NARCOLEPSY
     Dosage: SEE IMAGE.
     Route: 048
     Dates: start: 20070815, end: 20070818
  4. XYREM [Suspect]
     Indication: NARCOLEPSY
     Dosage: SEE IMAGE.
     Route: 048
     Dates: start: 20070819, end: 20070821
  5. XYREM [Suspect]
     Indication: NARCOLEPSY
     Dosage: SEE IMAGE.
     Route: 048
     Dates: start: 20070822, end: 20070825
  6. XYREM [Suspect]
     Indication: NARCOLEPSY
     Dosage: SEE IMAGE.
     Route: 048
     Dates: start: 20070826, end: 20070917
  7. XYREM [Suspect]
     Indication: NARCOLEPSY
     Dosage: SEE IMAGE.
     Route: 048
     Dates: start: 20080101, end: 20081005
  8. XYREM [Suspect]
     Indication: NARCOLEPSY
     Dosage: SEE IMAGE.
     Route: 048
     Dates: start: 20081006, end: 20081007
  9. XYREM [Suspect]
     Indication: NARCOLEPSY
     Dosage: SEE IMAGE.
     Route: 048
     Dates: start: 20070918
  10. MAZINDOL [Suspect]
     Indication: CATAPLEXY
     Dosage: ORAL
     Route: 048
     Dates: start: 20050101, end: 20070801
  11. METHYLPHENIDATE HCL [Concomitant]
  12. VENLAFAXINE HYDROCHLORIDE [Concomitant]
  13. METHYLPHENIDATE HYDROCHLORIDE SLOW RELEASE [Concomitant]

REACTIONS (6)
  - ACCIDENTAL OVERDOSE [None]
  - COMA [None]
  - MUSCLE CONTRACTIONS INVOLUNTARY [None]
  - NIGHTMARE [None]
  - SLEEP APNOEA SYNDROME [None]
  - SUPRAVENTRICULAR EXTRASYSTOLES [None]
